FAERS Safety Report 7600153-8 (Version None)
Quarter: 2011Q3

REPORT INFORMATION
  Report Type: 
  Country: None (occurrence: None)
  Receive Date: 20110711
  Receipt Date: 20110629
  Transmission Date: 20111222
  Serious: Yes (Disabling, Other)
  Sender: FDA-Public Use
  Company Number: PHEH2009US02599

PATIENT
  Sex: Male

DRUGS (3)
  1. RITALIN [Suspect]
     Indication: ATTENTION DEFICIT/HYPERACTIVITY DISORDER
     Dosage: 10 MG, QD
     Dates: start: 19650101, end: 19750101
  2. LITHIUM [Concomitant]
     Dosage: 600 MG, BID
  3. BENADRYL [Concomitant]
     Indication: SLEEP DISORDER
     Dosage: 50 MG, QD
     Route: 048

REACTIONS (11)
  - MOOD SWINGS [None]
  - MENTAL DISORDER [None]
  - LEARNING DISABILITY [None]
  - BIPOLAR DISORDER [None]
  - CRYING [None]
  - SUICIDAL BEHAVIOUR [None]
  - DISABILITY [None]
  - DEPRESSED MOOD [None]
  - BRAIN INJURY [None]
  - FEELING ABNORMAL [None]
  - HYPERTENSION [None]
